FAERS Safety Report 9308946 (Version 3)
Quarter: 2013Q3

REPORT INFORMATION
  Report Type: Spontaneous
  Country: BR (occurrence: BR)
  Receive Date: 20130524
  Receipt Date: 20130723
  Transmission Date: 20140515
  Serious: Yes (Hospitalization, Other)
  Sender: FDA-Public Use
  Company Number: BR-ASTRAZENECA-2013SE35594

PATIENT
  Age: 75 Year
  Sex: Male
  Weight: 81 kg

DRUGS (6)
  1. CRESTOR [Suspect]
     Indication: HYPERCHOLESTEROLAEMIA
     Route: 048
     Dates: start: 2004
  2. BRILINTA [Suspect]
     Indication: MYOCARDIAL INFARCTION
     Route: 048
     Dates: start: 201303
  3. ASA [Concomitant]
     Dosage: DAILY
  4. CAPOTEN [Concomitant]
     Indication: MYOCARDIAL INFARCTION
     Dates: start: 201303
  5. DIVELOL [Concomitant]
     Indication: MYOCARDIAL INFARCTION
     Dates: start: 201303
  6. PURAN T4 [Concomitant]
     Indication: THYROID DISORDER
     Dates: start: 201212

REACTIONS (7)
  - Myocardial infarction [Recovered/Resolved]
  - Cerebrovascular accident [Recovered/Resolved with Sequelae]
  - Malaise [Recovered/Resolved]
  - Coronary artery occlusion [Recovered/Resolved]
  - Thyroid disorder [Unknown]
  - Hypoaesthesia [Unknown]
  - Hypoaesthesia [Unknown]
